FAERS Safety Report 5096888-4 (Version None)
Quarter: 2006Q3

REPORT INFORMATION
  Report Type: 
  Country: None (occurrence: None)
  Receive Date: 20060901
  Receipt Date: 20060901
  Transmission Date: 20061208
  Serious: Yes (Life-Threatening, Hospitalization, Disabling, Other)
  Sender: FDA-Public Use
  Company Number: None

PATIENT
  Age: 30 Year
  Sex: Female
  Weight: 76.6579 kg

DRUGS (2)
  1. ZOLOFT [Suspect]
     Indication: POSTPARTUM DEPRESSION
     Dosage: 100 MG.  TWICE DAILY  PO
     Route: 048
     Dates: start: 20030801, end: 20040301
  2. EFFEXOR [Suspect]
     Indication: PANIC ATTACK
     Dosage: 150 MG.  TWICE DAILY  PO
     Route: 048
     Dates: start: 20040301, end: 20041001

REACTIONS (16)
  - ABNORMAL BEHAVIOUR [None]
  - ALCOHOL USE [None]
  - AMNESIA [None]
  - ATTENTION DEFICIT/HYPERACTIVITY DISORDER [None]
  - BIPOLAR DISORDER [None]
  - CONDITION AGGRAVATED [None]
  - DEPRESSION [None]
  - DRUG EXPOSURE BEFORE PREGNANCY [None]
  - HORMONE LEVEL ABNORMAL [None]
  - ILL-DEFINED DISORDER [None]
  - IMPRISONMENT [None]
  - MANIA [None]
  - PANIC ATTACK [None]
  - PERSONALITY CHANGE [None]
  - PREGNANCY [None]
  - THYROID DISORDER [None]
